FAERS Safety Report 6192054-X (Version None)
Quarter: 2009Q2

REPORT INFORMATION
  Report Type: 
  Country: None (occurrence: None)
  Receive Date: 20090515
  Receipt Date: 20090407
  Transmission Date: 20091009
  Serious: Yes (Death)
  Sender: FDA-Public Use
  Company Number: US-ROCHE-632801

PATIENT
  Age: 1 Year

DRUGS (1)
  1. OSELTAMIVIR [Suspect]
     Route: 065

REACTIONS (1)
  - PATHOGEN RESISTANCE [None]
